FAERS Safety Report 19020395 (Version 1)
Quarter: 2021Q1

REPORT INFORMATION
  Report Type: Spontaneous
  Country: FR (occurrence: FR)
  Receive Date: 20210317
  Receipt Date: 20210317
  Transmission Date: 20210420
  Serious: Yes (Other)
  Sender: FDA-Public Use
  Company Number: FR-UCBSA-2021012239

PATIENT

DRUGS (1)
  1. VIMPAT [Suspect]
     Active Substance: LACOSAMIDE
     Indication: PRODUCT USED FOR UNKNOWN INDICATION
     Dosage: 150?200 MG

REACTIONS (4)
  - Thymus disorder [Recovered/Resolved]
  - Malaise [Recovered/Resolved]
  - Cardiac disorder [Recovered/Resolved]
  - Irritability [Recovered/Resolved]
